FAERS Safety Report 19330069 (Version 2)
Quarter: 2021Q2

REPORT INFORMATION
  Report Type: Spontaneous
  Country: PL (occurrence: PL)
  Receive Date: 20210528
  Receipt Date: 20210608
  Transmission Date: 20210717
  Serious: Yes (Hospitalization)
  Sender: FDA-Public Use
  Company Number: PL-GE HEALTHCARE LIFE SCIENCES-2021CSU002504

PATIENT

DRUGS (3)
  1. POLOCARD [Concomitant]
     Active Substance: ASPIRIN
     Dosage: 75 MG
  2. CLARISCAN [Suspect]
     Active Substance: GADOTERATE MEGLUMINE
     Indication: ABDOMINAL PAIN
  3. CLARISCAN [Suspect]
     Active Substance: GADOTERATE MEGLUMINE
     Indication: MAGNETIC RESONANCE IMAGING ABDOMINAL
     Dosage: 17 ML, SINGLE
     Route: 042
     Dates: start: 20210514, end: 20210514

REACTIONS (7)
  - Erythema [Recovered/Resolved]
  - Swelling [Recovered/Resolved]
  - Swollen tongue [Recovered/Resolved]
  - Swelling face [Recovered/Resolved]
  - Lip swelling [Recovered/Resolved]
  - Dysphonia [Recovered/Resolved]
  - Sensation of foreign body [Recovered/Resolved]

NARRATIVE: CASE EVENT DATE: 20210514
